FAERS Safety Report 7468218-1 (Version None)
Quarter: 2011Q2

REPORT INFORMATION
  Report Type: 
  Country: None (occurrence: None)
  Receive Date: 20110509
  Receipt Date: 20110429
  Transmission Date: 20111010
  Serious: Yes (Hospitalization)
  Sender: FDA-Public Use
  Company Number: US-ASTRAZENECA-2010SE40660

PATIENT
  Age: 58 Year
  Sex: Female
  Weight: 86.2 kg

DRUGS (5)
  1. METHADONE HCL [Concomitant]
     Indication: PAIN
  2. SEROQUEL [Suspect]
     Route: 048
  3. ZOLOFT [Concomitant]
     Indication: DEPRESSION
  4. SEROQUEL [Suspect]
     Indication: SLEEP DISORDER
     Route: 048
     Dates: start: 20060101
  5. LASIX [Concomitant]

REACTIONS (6)
  - HAEMORRHOIDS [None]
  - LIVER DISORDER [None]
  - PORTAL HYPERTENSION [None]
  - HAEMORRHOID OPERATION [None]
  - NASOPHARYNGITIS [None]
  - HEPATIC CIRRHOSIS [None]
